FAERS Safety Report 11837241 (Version 4)
Quarter: 2017Q1

REPORT INFORMATION
  Report Type: Spontaneous
  Country: US (occurrence: US)
  Receive Date: 20151215
  Receipt Date: 20170125
  Transmission Date: 20170428
  Serious: No
  Sender: FDA-Public Use
  Company Number: US-PFIZER INC-2015420010

PATIENT
  Age: 72 Year
  Sex: Female
  Weight: 77.98 kg

DRUGS (2)
  1. SUTENT [Suspect]
     Active Substance: SUNITINIB MALATE
     Dosage: 37.5 MG, CYCLIC, (D1-D14 Q21D)
     Route: 048
     Dates: start: 201411, end: 201612
  2. SUTENT [Suspect]
     Active Substance: SUNITINIB MALATE
     Indication: NEOPLASM MALIGNANT
     Dosage: 50 MG, CYCLIC (1 CAP D1-D28 Q42 DAYS, D1-D28 OFF 14D)
     Route: 048
     Dates: start: 20141101, end: 20161130

REACTIONS (6)
  - Neoplasm progression [Unknown]
  - Diarrhoea [Recovered/Resolved]
  - Dyspepsia [Unknown]
  - Nausea [Recovered/Resolved]
  - Decreased appetite [Unknown]
  - Blood potassium decreased [Unknown]

NARRATIVE: CASE EVENT DATE: 20151130
